FAERS Safety Report 15594620 (Version 2)
Quarter: 2019Q1

REPORT INFORMATION
  Report Type: Spontaneous
  Country: DE (occurrence: DE)
  Receive Date: 20181107
  Receipt Date: 20190114
  Transmission Date: 20190417
  Serious: Yes (Other)
  Sender: FDA-Public Use
  Company Number: DE-ANIPHARMA-2018-DE-000182

PATIENT
  Sex: Female

DRUGS (4)
  1. L-THYROXIN [Concomitant]
     Active Substance: LEVOTHYROXINE SODIUM
     Dosage: 100 UG WEEKLY
     Route: 065
  2. VITAMIN D [Concomitant]
     Active Substance: CHOLECALCIFEROL
     Dosage: 20.000 U WEEKLY
     Route: 065
  3. CANDESARTAN CILEXETIL. [Suspect]
     Active Substance: CANDESARTAN CILEXETIL
     Indication: HYPERTENSION
     Dosage: 4 MG WEEK
     Route: 048
     Dates: start: 201810
  4. LODOTRA [Suspect]
     Active Substance: PREDNISONE
     Dosage: 4 MG / DOSE TEXT: 1 MG AND 2 MG AT A DAILY DOSE OF 3 MG / DOSE TEXT: 2 MG
     Route: 065

REACTIONS (10)
  - Hypertensive crisis [Unknown]
  - Drug interaction [Unknown]
  - Disturbance in attention [Unknown]
  - Dizziness [Unknown]
  - Thinking abnormal [Unknown]
  - Tinnitus [Unknown]
  - Hypertension [Unknown]
  - Headache [Unknown]
  - Amnesia [Unknown]
  - Dysphagia [Unknown]

NARRATIVE: CASE EVENT DATE: 2018
